FAERS Safety Report 6453786-9 (Version None)
Quarter: 2009Q4

REPORT INFORMATION
  Report Type: 
  Country: None (occurrence: None)
  Receive Date: 20091123
  Receipt Date: 20091123
  Transmission Date: 20100525
  Serious: Yes (Other)
  Sender: FDA-Public Use
  Company Number: None

PATIENT
  Age: 29 Year
  Sex: Female

DRUGS (1)
  1. HALLS COUGH DROPS HALLS [Suspect]
     Indication: MULTIPLE ALLERGIES
     Dosage: 1 COUGH DROP PO
     Route: 048
     Dates: start: 20091117, end: 20091119

REACTIONS (2)
  - DYSPNOEA [None]
  - PRODUCT LABEL ISSUE [None]
